FAERS Safety Report 14275229 (Version 1)
Quarter: 2017Q4

REPORT INFORMATION
  Report Type: Spontaneous
  Country: US (occurrence: US)
  Receive Date: 20171211
  Receipt Date: 20171211
  Transmission Date: 20180321
  Serious: Yes (Other)
  Sender: FDA-Public Use
  Company Number: US-OTSUKA-2017_010082

PATIENT
  Sex: Male

DRUGS (2)
  1. ABILIFY [Suspect]
     Active Substance: ARIPIPRAZOLE
     Indication: AUTISM SPECTRUM DISORDER
     Dosage: UNK
     Route: 065
  2. ABILIFY [Suspect]
     Active Substance: ARIPIPRAZOLE
     Indication: MAJOR DEPRESSION
     Dosage: UNK
     Route: 065
     Dates: start: 20070205, end: 20160106

REACTIONS (7)
  - Hepatic steatosis [Unknown]
  - Tic [Recovered/Resolved]
  - Hypersexuality [Recovered/Resolved]
  - Eating disorder [Recovered/Resolved]
  - Weight increased [Unknown]
  - Obsessive-compulsive disorder [Recovered/Resolved]
  - Hepatic fibrosis [Unknown]
